FAERS Safety Report 13443969 (Version 1)
Quarter: 2017Q2

REPORT INFORMATION
  Report Type: Spontaneous
  Country: US (occurrence: US)
  Receive Date: 20170414
  Receipt Date: 20170414
  Transmission Date: 20170830
  Serious: Yes (Life-Threatening, Hospitalization, Other)
  Sender: FDA-Public Use
  Company Number: US-ENDO PHARMACEUTICALS INC-2017-001665

PATIENT
  Age: 58 Year
  Sex: Female
  Weight: 100 kg

DRUGS (9)
  1. MORPHINE [Concomitant]
     Active Substance: MORPHINE
     Indication: PAIN MANAGEMENT
     Dosage: UNK
  2. DOXYCYCLINE. [Concomitant]
     Active Substance: DOXYCYCLINE
     Indication: ARTHRITIS BACTERIAL
     Dosage: UNK
     Route: 065
  3. FENTANYL. [Concomitant]
     Active Substance: FENTANYL
     Indication: PAIN MANAGEMENT
     Dosage: UNK
  4. CEFAZOLIN [Concomitant]
     Active Substance: CEFAZOLIN
     Indication: PAIN MANAGEMENT
  5. DOXYCYCLINE. [Concomitant]
     Active Substance: DOXYCYCLINE
     Indication: PAIN MANAGEMENT
  6. KETALAR [Suspect]
     Active Substance: KETAMINE HYDROCHLORIDE
     Indication: PAIN MANAGEMENT
     Dosage: 1 MG/KG AT 100 KG, 50 MG
     Route: 040
  7. TORADOL [Concomitant]
     Active Substance: KETOROLAC TROMETHAMINE
     Indication: PAIN MANAGEMENT
     Dosage: UNK
  8. KETALAR [Suspect]
     Active Substance: KETAMINE HYDROCHLORIDE
     Indication: SEDATIVE THERAPY
     Dosage: 0.15 MG/KG/HOUR, UNKNOWN
     Route: 041
  9. CEFAZOLIN [Concomitant]
     Active Substance: CEFAZOLIN
     Indication: ARTHRITIS BACTERIAL
     Dosage: UNK

REACTIONS (4)
  - Acute pulmonary oedema [Recovered/Resolved]
  - Hypertensive emergency [Recovered/Resolved]
  - Cardiac arrest [Recovered/Resolved]
  - Respiratory failure [Recovered/Resolved]
